FAERS Safety Report 25907311 (Version 1)
Quarter: 2025Q4

REPORT INFORMATION
  Report Type: Spontaneous
  Country: US (occurrence: None)
  Receive Date: 20251010
  Receipt Date: 20251010
  Transmission Date: 20260118
  Serious: Yes (Hospitalization, Disabling)
  Sender: FDA-CTU
  Company Number: None

PATIENT
  Age: 60 Year
  Sex: Male
  Weight: 98.5 kg

DRUGS (1)
  1. TECVAYLI [Suspect]
     Active Substance: TECLISTAMAB-CQYV
     Indication: Plasma cell myeloma
     Dosage: ?144 MG EVERY OTHER WEEK SUBCUTANEOUS
     Route: 058
     Dates: start: 20240408, end: 20250902

REACTIONS (3)
  - Progressive multifocal leukoencephalopathy [None]
  - Parkinson^s disease [None]
  - Nervous system disorder [None]

NARRATIVE: CASE EVENT DATE: 20250930
